FAERS Safety Report 4803300-6 (Version None)
Quarter: 2005Q3

REPORT INFORMATION
  Report Type: 
  Country: None (occurrence: None)
  Receive Date: 20050929
  Receipt Date: 20050825
  Transmission Date: 20060218
  Serious: No
  Sender: FDA-Public Use
  Company Number: 05P-163-0309389-00

PATIENT
  Age: 78 Year
  Sex: Male

DRUGS (9)
  1. HUMIRA [Suspect]
     Indication: RHEUMATOID ARTHRITIS
     Dosage: 40 MG, 1 IN 2 WK, SUBCUTANEOUS
     Route: 058
     Dates: start: 20050101
  2. DOXAZOSIN MESYLATE [Concomitant]
  3. METHOTREXATE [Concomitant]
  4. PHENYTOIN SODIUM [Concomitant]
  5. FOLIC ACID [Concomitant]
  6. ALENDRONATE SODIUM [Concomitant]
  7. PREDNISONE [Concomitant]
  8. HYDROXYCHLOROQUINE PHOSPHATE [Concomitant]
  9. LORAZEPAM [Concomitant]

REACTIONS (1)
  - TONGUE NEOPLASM MALIGNANT STAGE UNSPECIFIED [None]
